FAERS Safety Report 17170374 (Version 3)
Quarter: 2020Q2

REPORT INFORMATION
  Report Type: Report from Study
  Country: CA (occurrence: CA)
  Receive Date: 20191218
  Receipt Date: 20200417
  Transmission Date: 20200713
  Serious: Yes (Other)
  Sender: FDA-Public Use
  Company Number: CA-JNJFOC-20191214405

PATIENT
  Age: 71 Year
  Sex: Male

DRUGS (2)
  1. STELARA [Suspect]
     Active Substance: USTEKINUMAB
     Indication: CROHN^S DISEASE
     Route: 058
     Dates: start: 20181205
  2. STELARA [Suspect]
     Active Substance: USTEKINUMAB

REACTIONS (5)
  - Abdominal pain upper [Not Recovered/Not Resolved]
  - Constipation [Unknown]
  - Recurrent cancer [Unknown]
  - Rash [Not Recovered/Not Resolved]
  - Psychiatric symptom [Unknown]

NARRATIVE: CASE EVENT DATE: 20191212
